FAERS Safety Report 4510364-6 (Version None)
Quarter: 2004Q4

REPORT INFORMATION
  Report Type: 
  Country: None (occurrence: None)
  Receive Date: 20041122
  Receipt Date: 20041115
  Transmission Date: 20050328
  Serious: Yes (Hospitalization)
  Sender: FDA-Public Use
  Company Number: 200227439BWH

PATIENT
  Age: 68 Year
  Sex: Male
  Weight: 45.3597 kg

DRUGS (17)
  1. MOXIFLOXACIN IV (MOXIFLOXACIN) [Suspect]
     Indication: ABDOMINAL INFECTION
     Dosage: 400 MG, QD, INTRAVENOUS
     Route: 042
     Dates: start: 20010914, end: 20010925
  2. CIMETIDINE [Concomitant]
  3. INSULIN [Concomitant]
  4. FENTANYL [Concomitant]
  5. POTASSIUM CHLORIDE [Concomitant]
  6. ALBUMINAR-5 [Concomitant]
  7. TPN [Concomitant]
  8. INTRALIPID 10% [Concomitant]
  9. REGLAN/ YUG [Concomitant]
  10. HEPARIN [Concomitant]
  11. LOMOTIL [Concomitant]
  12. TYLENOL (CAPLET) [Concomitant]
  13. METAMUCIL ^SEARLE^ [Concomitant]
  14. IRON SULFATETHIAMIN COMPOUND TAB [Concomitant]
  15. ZINC OXIDE 1% [Concomitant]
  16. GENTAMICIN [Concomitant]
  17. IMIPENEM [Concomitant]

REACTIONS (18)
  - ABDOMINAL ABSCESS [None]
  - BLOOD MAGNESIUM DECREASED [None]
  - BRADYCARDIA [None]
  - DIARRHOEA [None]
  - HAEMATOCRIT DECREASED [None]
  - HAEMOGLOBIN DECREASED [None]
  - HYPOGLYCAEMIA [None]
  - HYPOKALAEMIA [None]
  - HYPOTENSION [None]
  - ILEUS [None]
  - MENTAL STATUS CHANGES [None]
  - PERITONITIS [None]
  - PLATELET COUNT DECREASED [None]
  - SEPSIS [None]
  - SMALL INTESTINAL OBSTRUCTION [None]
  - TACHYCARDIA [None]
  - VENTRICULAR EXTRASYSTOLES [None]
  - VOMITING [None]
